FAERS Safety Report 4906219-5 (Version None)
Quarter: 2006Q1

REPORT INFORMATION
  Report Type: 
  Country: None (occurrence: None)
  Receive Date: 20060201
  Receipt Date: 20060112
  Transmission Date: 20060701
  Serious: Yes (Hospitalization, Other)
  Sender: FDA-Public Use
  Company Number: 2006BH000685

PATIENT
  Age: 82 Year
  Sex: Female

DRUGS (6)
  1. POLYGAM S/D [Suspect]
     Indication: DEMYELINATING POLYNEUROPATHY
     Dosage: GM; IV    86 DOSE; 50 GM; IV   1 DOSE
     Route: 042
  2. CYCLOSPORINE [Concomitant]
  3. MELPHALAN [Concomitant]
  4. PREDNISONE [Concomitant]
  5. SOLU-CORTEF [Concomitant]
  6. TYLENOL [Concomitant]

REACTIONS (7)
  - BLOOD UREA INCREASED [None]
  - CEREBRAL ARTERY OCCLUSION [None]
  - DEHYDRATION [None]
  - GENERAL PHYSICAL HEALTH DETERIORATION [None]
  - GLOBULINS INCREASED [None]
  - HAEMATOCRIT DECREASED [None]
  - ISCHAEMIC STROKE [None]
